FAERS Safety Report 18945873 (Version 2)
Quarter: 2021Q1

REPORT INFORMATION
  Report Type: Spontaneous
  Country: TR (occurrence: TR)
  Receive Date: 20210226
  Receipt Date: 20210308
  Transmission Date: 20210420
  Serious: Yes (Other)
  Sender: FDA-Public Use
  Company Number: TR-UCBSA-2021009195

PATIENT

DRUGS (1)
  1. CERTOLIZUMAB PEGOL [Suspect]
     Active Substance: CERTOLIZUMAB PEGOL
     Indication: RHEUMATOID ARTHRITIS
     Dosage: UNK

REACTIONS (10)
  - Upper respiratory tract infection [Unknown]
  - Liver function test increased [Unknown]
  - Psoriasis [Unknown]
  - Herpes zoster [Unknown]
  - Hypersensitivity [Unknown]
  - Drug ineffective [Unknown]
  - Tuberculosis [Unknown]
  - Pneumonia bacterial [Unknown]
  - Leukopenia [Unknown]
  - Arthritis bacterial [Unknown]
